FAERS Safety Report 12053951 (Version 2)
Quarter: 2016Q4

REPORT INFORMATION
  Report Type: Spontaneous
  Country: US (occurrence: US)
  Receive Date: 20160209
  Receipt Date: 20161108
  Transmission Date: 20170206
  Serious: No
  Sender: FDA-Public Use
  Company Number: US-SA-2015SA189282

PATIENT
  Age: 82 Year
  Sex: Female
  Weight: 68.94 kg

DRUGS (9)
  1. ZETIA [Concomitant]
     Active Substance: EZETIMIBE
     Indication: BLOOD CHOLESTEROL
     Route: 065
  2. PRALUENT [Suspect]
     Active Substance: ALIROCUMAB
     Indication: BLOOD CHOLESTEROL INCREASED
     Route: 058
     Dates: start: 201510
  3. LESCOL [Concomitant]
     Active Substance: FLUVASTATIN SODIUM
     Indication: BLOOD CHOLESTEROL
  4. PRALUENT [Suspect]
     Active Substance: ALIROCUMAB
     Indication: BLOOD CHOLESTEROL INCREASED
     Route: 058
  5. ALIROCUMAB PREFILLED PEN [Concomitant]
     Active Substance: ALIROCUMAB
     Dates: start: 20151019, end: 20151102
  6. PRALUENT [Suspect]
     Active Substance: ALIROCUMAB
     Indication: DYSLIPIDAEMIA
     Route: 058
     Dates: start: 201510
  7. PRALUENT [Suspect]
     Active Substance: ALIROCUMAB
     Indication: DYSLIPIDAEMIA
     Route: 058
  8. METOPROLOL SUCCINATE. [Concomitant]
     Active Substance: METOPROLOL SUCCINATE
     Indication: HEART RATE IRREGULAR
     Route: 065
  9. LEVOTHYROXINE. [Concomitant]
     Active Substance: LEVOTHYROXINE
     Indication: THYROID DISORDER
     Route: 065

REACTIONS (3)
  - Pruritus [Recovered/Resolved]
  - Urticaria [Recovered/Resolved]
  - Rash [Unknown]

NARRATIVE: CASE EVENT DATE: 20151020
